FAERS Safety Report 5132870-6 (Version None)
Quarter: 2006Q4

REPORT INFORMATION
  Report Type: 
  Country: None (occurrence: None)
  Receive Date: 20061023
  Receipt Date: 20060927
  Transmission Date: 20070319
  Serious: Yes (Other)
  Sender: FDA-Public Use
  Company Number: PHBS2006JP15208

PATIENT
  Age: 4 Year
  Sex: Female

DRUGS (6)
  1. NEORAL [Suspect]
     Indication: CORD BLOOD TRANSPLANT THERAPY
     Route: 048
  2. METHOTREXATE [Concomitant]
     Indication: CORD BLOOD TRANSPLANT THERAPY
     Route: 065
  3. BUSULFAN [Concomitant]
     Indication: CORD BLOOD TRANSPLANT THERAPY
     Dosage: 140 MG/M2
     Route: 065
  4. CYCLOPHOSPHAMIDE [Concomitant]
     Indication: CORD BLOOD TRANSPLANT THERAPY
     Dosage: 50 MG/KG/D
     Route: 065
  5. VP-16 [Suspect]
  6. ANTILYMPHOCYTE GLOBULIN [Suspect]

REACTIONS (5)
  - HEPATOSPLENOMEGALY [None]
  - HISTIOCYTOSIS HAEMATOPHAGIC [None]
  - PYREXIA [None]
  - REFRACTORINESS TO PLATELET TRANSFUSION [None]
  - SERUM FERRITIN INCREASED [None]
